FAERS Safety Report 25382668 (Version 2)
Quarter: 2025Q3

REPORT INFORMATION
  Report Type: Spontaneous
  Country: JP (occurrence: JP)
  Receive Date: 20250601
  Receipt Date: 20250714
  Transmission Date: 20251021
  Serious: Yes (Life-Threatening, Hospitalization)
  Sender: MERCK SHARP & DOHME LLC
  Company Number: JP-009507513-2289492

PATIENT
  Age: 58 Year
  Sex: Female

DRUGS (3)
  1. KEYTRUDA [Suspect]
     Active Substance: PEMBROLIZUMAB
     Indication: Triple negative breast cancer
     Dosage: 200 MG ONCE EVERY 3 WEEKS
     Route: 041
     Dates: start: 20241105, end: 202501
  2. PACLITAXEL [Concomitant]
     Active Substance: PACLITAXEL
     Indication: Triple negative breast cancer
     Route: 041
     Dates: start: 20241105, end: 202501
  3. CARBOPLATIN [Concomitant]
     Active Substance: CARBOPLATIN
     Indication: Triple negative breast cancer
     Dosage: AMOUNT EQUIVALENT TO AUC1.5
     Route: 041
     Dates: start: 20241105, end: 202501

REACTIONS (3)
  - Hyponatraemia [Recovered/Resolved]
  - Neutropenia [Recovered/Resolved]
  - Immune-mediated adrenal insufficiency [Recovered/Resolved]

NARRATIVE: CASE EVENT DATE: 20250101
